FAERS Safety Report 5268458-6 (Version None)
Quarter: 2007Q1

REPORT INFORMATION
  Report Type: 
  Country: None (occurrence: None)
  Receive Date: 20070319
  Receipt Date: 20070306
  Transmission Date: 20070707
  Serious: Yes (Other)
  Sender: FDA-Public Use
  Company Number: GB-PFIZER INC-2007019162

PATIENT
  Age: 51 Year
  Sex: Female

DRUGS (1)
  1. DEPO-PROVERA [Suspect]
     Indication: CONTRACEPTION
     Dosage: FREQ:FIRST INJECTION
     Route: 030
     Dates: start: 20041201, end: 20041201

REACTIONS (2)
  - INJURY [None]
  - JOINT EFFUSION [None]
